FAERS Safety Report 9410164 (Version 2)
Quarter: 2013Q3

REPORT INFORMATION
  Report Type: Report from Study
  Country: JP (occurrence: JP)
  Receive Date: 20130719
  Receipt Date: 20130910
  Transmission Date: 20140515
  Serious: Yes (Other)
  Sender: FDA-Public Use
  Company Number: JP-NAPPMUNDI-GBR-2013-0015033

PATIENT
  Age: 60 Year
  Sex: Male

DRUGS (15)
  1. OXYCODONE HYDROCHLORIDE [Suspect]
     Indication: PRODUCT USED FOR UNKNOWN INDICATION
     Dosage: 1.5 MG/HR, UNK
     Route: 042
     Dates: start: 20130528, end: 20130528
  2. OXYCODONE HYDROCHLORIDE [Suspect]
     Dosage: 1.5 MG, TID
     Dates: start: 20130528, end: 20130528
  3. OXYCODONE HYDROCHLORIDE [Suspect]
     Dosage: 2.0 MG/H - 2.5 MG/H
     Dates: start: 20130529, end: 20130529
  4. OXYCODONE HYDROCHLORIDE [Suspect]
     Dosage: 1.5 MG - 2.5 MG THIRTEEN TIMES
     Dates: start: 20130529, end: 20130529
  5. OXYCODONE HYDROCHLORIDE [Suspect]
     Dosage: 2.5 MG, TEN TIMES
     Dates: start: 20130530, end: 20130530
  6. OXYCODONE HYDROCHLORIDE [Suspect]
     Dosage: 3.0 MG/HR, UNK
     Dates: start: 20130531, end: 20130531
  7. OXYCODONE HYDROCHLORIDE [Suspect]
     Dosage: 2.5 MG - 3.0 MG EIGHT TIMES
     Dates: start: 20130531, end: 20130531
  8. OXYCODONE HYDROCHLORIDE [Suspect]
     Dosage: 3.0 MG, SIX TIMES
     Dates: start: 20130601, end: 20130601
  9. OXYCODONE HYDROCHLORIDE [Suspect]
     Dosage: 3.0 MG, NINE TIMES
     Dates: start: 20130602, end: 20130602
  10. OXYCODONE HYDROCHLORIDE [Suspect]
     Dosage: 3.5 MG/HR, UNK
     Dates: start: 20130603, end: 20130603
  11. OXYCODONE HYDROCHLORIDE [Suspect]
     Dosage: 3.0 MG - 3.5 MG ELEVEN TIMES
     Dates: start: 20130603, end: 20130603
  12. OXYCODONE HYDROCHLORIDE [Suspect]
     Dosage: 4.0 MG/HR, EIGHT TIMES
     Dates: start: 20130604, end: 20130604
  13. OXYCODONE HYDROCHLORIDE [Suspect]
     Dosage: 4.0 MG, NINE TIMES
     Dates: start: 20130605, end: 20130605
  14. OXYCODONE HYDROCHLORIDE [Suspect]
     Dosage: 4 MG, FOURTEEN TIMES
     Dates: start: 20130606, end: 20130606
  15. OXYCODONE HYDROCHLORIDE [Suspect]
     Dosage: 4 MG, ELEVEN TIMES
     Dates: start: 20130607, end: 20130607

REACTIONS (1)
  - Delirium [Not Recovered/Not Resolved]
